FAERS Safety Report 24807263 (Version 2)
Quarter: 2025Q3

REPORT INFORMATION
  Report Type: Spontaneous
  Country: US (occurrence: US)
  Receive Date: 20250105
  Receipt Date: 20250823
  Transmission Date: 20251021
  Serious: No
  Sender: SANOFI AVENTIS
  Company Number: US-SA-2025SA001231

PATIENT
  Age: 77 Year
  Sex: Female

DRUGS (2)
  1. DUPIXENT [Suspect]
     Active Substance: DUPILUMAB
     Indication: Dermatitis atopic
     Dosage: 300 MG, QOW
     Route: 058
     Dates: start: 20241030
  2. CLOBETASOL [Concomitant]
     Active Substance: CLOBETASOL

REACTIONS (6)
  - Injection site pain [Unknown]
  - Inappropriate schedule of product administration [Unknown]
  - Rash [Unknown]
  - Therapeutic response shortened [Unknown]
  - Dermatitis atopic [Unknown]
  - Pruritus [Unknown]

NARRATIVE: CASE EVENT DATE: 20250801
